FAERS Safety Report 5379786-8 (Version None)
Quarter: 2007Q3

REPORT INFORMATION
  Report Type: 
  Country: None (occurrence: None)
  Receive Date: 20070706
  Receipt Date: 20070625
  Transmission Date: 20080115
  Serious: Yes (Death)
  Sender: FDA-Public Use
  Company Number: IN-KINGPHARMUSA00001-K200700802

PATIENT

DRUGS (1)
  1. HUMATIN [Suspect]
     Dosage: 11 MG/KG, QD
     Route: 030

REACTIONS (2)
  - ASPARTATE AMINOTRANSFERASE INCREASED [None]
  - DEATH [None]
